FAERS Safety Report 8269033-1 (Version None)
Quarter: 2012Q2

REPORT INFORMATION
  Report Type: 
  Country: None (occurrence: None)
  Receive Date: 20120409
  Receipt Date: 20120329
  Transmission Date: 20120825
  Serious: Yes (Hospitalization)
  Sender: FDA-Public Use
  Company Number: US-ASTRAZENECA-2011SE31273

PATIENT
  Age: 54 Year
  Sex: Male
  Weight: 83.9 kg

DRUGS (8)
  1. XANAX [Concomitant]
  2. SEROQUEL XR [Suspect]
     Indication: BIPOLAR DISORDER
     Route: 048
     Dates: start: 20091201
  3. BUSPAR [Concomitant]
  4. SEROQUEL XR [Suspect]
     Route: 048
     Dates: start: 20091201
  5. FLEXERIL [Concomitant]
  6. LORTAB [Concomitant]
  7. ULTRAM [Concomitant]
  8. ELAVIL [Concomitant]

REACTIONS (11)
  - DRUG EFFECT INCREASED [None]
  - DRUG DOSE OMISSION [None]
  - MALAISE [None]
  - INCORRECT DOSE ADMINISTERED [None]
  - ADVERSE DRUG REACTION [None]
  - DISTURBANCE IN ATTENTION [None]
  - LACK OF SPONTANEOUS SPEECH [None]
  - MYOCARDIAL INFARCTION [None]
  - AGITATION [None]
  - DYSPHEMIA [None]
  - WRONG TECHNIQUE IN DRUG USAGE PROCESS [None]
